FAERS Safety Report 7055416-4 (Version None)
Quarter: 2010Q4

REPORT INFORMATION
  Report Type: 
  Country: None (occurrence: None)
  Receive Date: 20101021
  Receipt Date: 20101020
  Transmission Date: 20110411
  Serious: No
  Sender: FDA-Public Use
  Company Number: US-B.I. PHARMACEUTICALS,INC./RIDGEFIELD-2010-BP-11785BP

PATIENT
  Sex: Male

DRUGS (2)
  1. ZANTAC 150 [Suspect]
     Indication: DYSPEPSIA
     Dosage: 150 MG
     Route: 048
     Dates: start: 19990101
  2. ZANTAC 150 [Suspect]
     Dosage: 4-6 TABLETS DAILY
     Route: 048

REACTIONS (2)
  - DRUG SCREEN POSITIVE [None]
  - DYSPEPSIA [None]
